FAERS Safety Report 16928608 (Version 1)
Quarter: 2019Q4

REPORT INFORMATION
  Report Type: Spontaneous
  Country: US (occurrence: US)
  Receive Date: 20191017
  Receipt Date: 20191017
  Transmission Date: 20200122
  Serious: Yes (Other)
  Sender: FDA-Public Use
  Company Number: US-ASTRAZENECA-2019SF45527

PATIENT
  Age: 25659 Day
  Sex: Female

DRUGS (4)
  1. BYDUREON BCISE [Suspect]
     Active Substance: EXENATIDE
     Indication: TYPE 2 DIABETES MELLITUS
     Route: 058
     Dates: start: 201906, end: 20191007
  2. BYETTA [Suspect]
     Active Substance: EXENATIDE
     Indication: TYPE 2 DIABETES MELLITUS
     Route: 065
     Dates: start: 201906
  3. BYETTA [Suspect]
     Active Substance: EXENATIDE
     Indication: TYPE 2 DIABETES MELLITUS
     Route: 065
     Dates: start: 2009
  4. PENICILLIN [Concomitant]
     Active Substance: PENICILLIN
     Indication: TOOTH ABSCESS
     Route: 048
     Dates: end: 201910

REACTIONS (5)
  - Product dose omission [Not Recovered/Not Resolved]
  - Tooth abscess [Not Recovered/Not Resolved]
  - Breast cancer [Unknown]
  - Body height decreased [Not Recovered/Not Resolved]
  - Nausea [Unknown]

NARRATIVE: CASE EVENT DATE: 201910
